FAERS Safety Report 21039179 (Version 1)
Quarter: 2022Q3

REPORT INFORMATION
  Report Type: Spontaneous
  Country: GB (occurrence: GB)
  Receive Date: 20220704
  Receipt Date: 20220704
  Transmission Date: 20221026
  Serious: Yes (Other)
  Sender: FDA-Public Use
  Company Number: GB-MHRA-MED-202206300002303900-VKHSB

PATIENT

DRUGS (4)
  1. LAMICTAL [Interacting]
     Active Substance: LAMOTRIGINE
     Indication: Product used for unknown indication
     Dosage: UNK
     Route: 065
  2. LISDEXAMFETAMINE DIMESYLATE [Interacting]
     Active Substance: LISDEXAMFETAMINE DIMESYLATE
     Indication: Attention deficit hyperactivity disorder
     Dosage: UNK, BID (40 MG IN THE MORNING, 30 MG IN THE EVENING. PLUS I AM ON LAMOTROGINE 75 MG; ;
     Route: 065
     Dates: start: 20220617, end: 20220630
  3. LAMOTRIGINE [Concomitant]
     Active Substance: LAMOTRIGINE
     Indication: Adverse drug reaction
     Dosage: UNK
     Route: 065
     Dates: start: 20220101
  4. LAMOTRIGINE [Concomitant]
     Active Substance: LAMOTRIGINE
     Indication: Affect lability

REACTIONS (2)
  - Drug hypersensitivity [Not Recovered/Not Resolved]
  - Drug interaction [Not Recovered/Not Resolved]

NARRATIVE: CASE EVENT DATE: 20220630
